FAERS Safety Report 21954690 (Version 2)
Quarter: 2023Q1

REPORT INFORMATION
  Report Type: Other
  Country: GB (occurrence: None)
  Receive Date: 20230205
  Receipt Date: 20230331
  Transmission Date: 20230418
  Serious: Yes (Hospitalization)
  Sender: FDA-Public Use
  Company Number: GB-ROCHE-3274705

PATIENT
  Age: 57 Year
  Sex: Male
  Weight: 89.9 kg

DRUGS (2)
  1. ATEZOLIZUMAB [Suspect]
     Active Substance: ATEZOLIZUMAB
     Indication: Hepatocellular carcinoma
     Dosage: DOSE LAST STUDY DRUG ADMIN PRIOR AE AND SAE 1200MG, START DATE OF MOST RECENT DOSE OF STUDY DRUG PRI
     Route: 041
     Dates: start: 20221221, end: 20230111
  2. BEVACIZUMAB [Suspect]
     Active Substance: BEVACIZUMAB
     Indication: Hepatocellular carcinoma
     Route: 065
     Dates: start: 20221221

REACTIONS (2)
  - Hypercalcaemia [Not Recovered/Not Resolved]
  - Sepsis [Not Recovered/Not Resolved]

NARRATIVE: CASE EVENT DATE: 20230127
